FAERS Safety Report 13490724 (Version 1)
Quarter: 2017Q2

REPORT INFORMATION
  Report Type: Spontaneous
  Country: US (occurrence: US)
  Receive Date: 20170426
  Receipt Date: 20170426
  Transmission Date: 20170830
  Serious: Yes (Hospitalization, Other)
  Sender: FDA-Public Use
  Company Number: None

PATIENT
  Age: 44 Year
  Sex: Female
  Weight: 70.37 kg

DRUGS (1)
  1. BOTOX [Suspect]
     Active Substance: ONABOTULINUMTOXINA

REACTIONS (10)
  - Anosmia [None]
  - Blood pressure increased [None]
  - Paraesthesia [None]
  - Insomnia [None]
  - Ageusia [None]
  - Muscle twitching [None]
  - Anxiety [None]
  - Hypoaesthesia [None]
  - Drug ineffective [None]
  - Drug interaction [None]

NARRATIVE: CASE EVENT DATE: 20170414
